FAERS Safety Report 24415068 (Version 1)
Quarter: 2024Q4

REPORT INFORMATION
  Report Type: Spontaneous
  Country: RO (occurrence: RO)
  Receive Date: 20241009
  Receipt Date: 20241009
  Transmission Date: 20250114
  Serious: Yes (Hospitalization, Other)
  Sender: SANDOZ
  Company Number: RO-SANDOZ-SDZ2024RO085062

PATIENT
  Age: 6 Month
  Sex: Female

DRUGS (1)
  1. TACROLIMUS [Suspect]
     Active Substance: TACROLIMUS
     Indication: Immunosuppression
     Dosage: UNK
     Route: 065

REACTIONS (6)
  - Renal tubular acidosis [Recovering/Resolving]
  - Rotavirus infection [Recovering/Resolving]
  - Post transplant lymphoproliferative disorder [Recovering/Resolving]
  - Epstein-Barr viraemia [Recovering/Resolving]
  - Cytomegalovirus infection [Recovering/Resolving]
  - Gastroenteritis bacterial [Recovering/Resolving]
